FAERS Safety Report 5101485-8 (Version None)
Quarter: 2006Q3

REPORT INFORMATION
  Report Type: 
  Country: None (occurrence: None)
  Receive Date: 20060911
  Receipt Date: 20060901
  Transmission Date: 20061208
  Serious: Yes (Other)
  Sender: FDA-Public Use
  Company Number: CA-JNJFOC-20060900568

PATIENT
  Age: 53 Year
  Sex: Female

DRUGS (2)
  1. REMICADE [Suspect]
     Dosage: TWO DOSES ON UNSPECIFIED DATES.
     Route: 042
  2. REMICADE [Suspect]
     Indication: ANKYLOSING SPONDYLITIS
     Dosage: TWO DOSES ON UNSPECIFIED DATES.
     Route: 042

REACTIONS (2)
  - ABDOMINAL PAIN UPPER [None]
  - VOMITING [None]
